FAERS Safety Report 23424242 (Version 3)
Quarter: 2024Q4

REPORT INFORMATION
  Report Type: Report from Study
  Country: US (occurrence: US)
  Receive Date: 20240120
  Receipt Date: 20241210
  Transmission Date: 20250114
  Serious: Yes (Hospitalization, Other)
  Sender: ABBVIE
  Company Number: US-ABBVIE-4731861

PATIENT
  Age: 61 Year
  Sex: Female
  Weight: 83 kg

DRUGS (14)
  1. HUMIRA [Suspect]
     Active Substance: ADALIMUMAB
     Indication: Hidradenitis
     Dosage: FORM STRENGTH: 80 MG
     Route: 058
     Dates: start: 20221227, end: 20230228
  2. HUMIRA [Suspect]
     Active Substance: ADALIMUMAB
     Dosage: START DATE TEXT: END OF  DEC 2022?FORM STRENGTH: 80 MILLIGRAM
     Route: 058
     Dates: start: 202212
  3. HUMIRA [Suspect]
     Active Substance: ADALIMUMAB
     Route: 058
     Dates: start: 20221109
  4. CARVEDILOL [Concomitant]
     Active Substance: CARVEDILOL
     Indication: Hypertension
  5. METFORMIN [Concomitant]
     Active Substance: METFORMIN HYDROCHLORIDE
     Indication: Diabetes mellitus
  6. OXYCODONE [Concomitant]
     Active Substance: OXYCODONE
     Indication: Spinal disorder
  7. DOXYCYCLINE [Concomitant]
     Active Substance: DOXYCYCLINE
     Indication: Hidradenitis
  8. HYDROCORTISONE [Suspect]
     Active Substance: HYDROCORTISONE
     Indication: Pustule
     Route: 061
     Dates: start: 202303, end: 202303
  9. HYDROCORTISONE [Suspect]
     Active Substance: HYDROCORTISONE
     Indication: Pustule
     Route: 061
     Dates: start: 202303, end: 202303
  10. AMLODIPINE [Concomitant]
     Active Substance: AMLODIPINE BESYLATE
     Indication: Hypertension
  11. FLUOCINOLONE [Concomitant]
     Active Substance: FLUOCINOLONE
     Indication: Product used for unknown indication
     Dosage: CLOBETASOL 0.05 % SCALP SOLUTION
     Route: 061
  12. HYDROXYZINE HCL [Concomitant]
     Indication: Product used for unknown indication
     Route: 048
  13. KETOCONAZOLE [Concomitant]
     Active Substance: KETOCONAZOLE
     Indication: Product used for unknown indication
     Dosage: KETOCONAZOLE 2 % SHAMPOO
  14. TACROLIMUS [Concomitant]
     Active Substance: TACROLIMUS
     Indication: Product used for unknown indication
     Dosage: TACROLIMUS 0.03 % TOPICAL OINTMENT
     Route: 061

REACTIONS (46)
  - Peptostreptococcus infection [Recovered/Resolved]
  - Rash papular [Recovered/Resolved]
  - Blister [Recovered/Resolved]
  - Soft tissue necrosis [Recovered/Resolved]
  - Skin discolouration [Not Recovered/Not Resolved]
  - Hidradenitis [Recovered/Resolved]
  - Impaired work ability [Unknown]
  - Neuralgia [Not Recovered/Not Resolved]
  - Purulent discharge [Recovered/Resolved]
  - Eye swelling [Recovering/Resolving]
  - Postoperative wound complication [Recovered/Resolved]
  - Dry skin [Recovering/Resolving]
  - Impaired driving ability [Not Recovered/Not Resolved]
  - Rash [Recovered/Resolved]
  - Rash vesicular [Not Recovered/Not Resolved]
  - Madarosis [Not Recovered/Not Resolved]
  - Limb mass [Recovered/Resolved]
  - Pruritus [Recovered/Resolved]
  - Scab [Not Recovered/Not Resolved]
  - Sitting disability [Recovered/Resolved]
  - Periorbital swelling [Recovered/Resolved]
  - Vision blurred [Recovered/Resolved]
  - Alopecia [Not Recovered/Not Resolved]
  - Scar [Not Recovered/Not Resolved]
  - Wound drainage [Recovering/Resolving]
  - Skin fissures [Not Recovered/Not Resolved]
  - Eyelid margin crusting [Recovered/Resolved]
  - Peripheral swelling [Recovered/Resolved]
  - Gait disturbance [Recovering/Resolving]
  - Movement disorder [Unknown]
  - Loss of personal independence in daily activities [Not Recovered/Not Resolved]
  - Pain [Not Recovered/Not Resolved]
  - Rash papular [Not Recovered/Not Resolved]
  - Postoperative wound complication [Recovered/Resolved]
  - Erythema [Not Recovered/Not Resolved]
  - Pruritus [Not Recovered/Not Resolved]
  - Pain [Recovered/Resolved]
  - Wound [Not Recovered/Not Resolved]
  - Swelling of eyelid [Recovered/Resolved]
  - Rash pruritic [Not Recovered/Not Resolved]
  - Immunodeficiency [Unknown]
  - Erythema [Recovered/Resolved]
  - Pustule [Recovered/Resolved]
  - Hidradenitis [Unknown]
  - Dry skin [Recovered/Resolved]
  - Meibomian gland dysfunction [Recovered/Resolved]

NARRATIVE: CASE EVENT DATE: 20230101
